FAERS Safety Report 25074687 (Version 1)
Quarter: 2025Q1

REPORT INFORMATION
  Report Type: Report from Study
  Country: IN (occurrence: IN)
  Receive Date: 20250313
  Receipt Date: 20250313
  Transmission Date: 20250408
  Serious: Yes (Hospitalization)
  Sender: ROCHE
  Company Number: IN-ROCHE-10000101405

PATIENT
  Age: 67 Year
  Sex: Male

DRUGS (3)
  1. TECENTRIQ [Suspect]
     Active Substance: ATEZOLIZUMAB
     Indication: Hepatocellular carcinoma
     Route: 042
     Dates: start: 20240810
  2. AVASTIN [Suspect]
     Active Substance: BEVACIZUMAB
     Indication: Hepatocellular carcinoma
     Route: 042
     Dates: start: 20240928
  3. AVASTIN [Suspect]
     Active Substance: BEVACIZUMAB
     Route: 042
     Dates: start: 20240810

REACTIONS (22)
  - Off label use [Unknown]
  - Thrombocytopenia [Unknown]
  - Eosinophilia [Unknown]
  - Haemoglobin decreased [Unknown]
  - Haematocrit decreased [Unknown]
  - Blood creatinine decreased [Unknown]
  - Bilirubin conjugated increased [Unknown]
  - Blood glucose increased [Unknown]
  - Spinal osteoarthritis [Unknown]
  - Oesophageal disorder [Unknown]
  - Gastric ulcer [Unknown]
  - Red blood cell count decreased [Unknown]
  - White blood cell count decreased [Unknown]
  - Monocyte count increased [Unknown]
  - Normochromic normocytic anaemia [Unknown]
  - Monocytosis [Unknown]
  - Melaena [Unknown]
  - Pulmonary mass [Unknown]
  - Hepatic lesion [Unknown]
  - Blood bilirubin increased [Unknown]
  - Glycosylated haemoglobin increased [Unknown]
  - Illness [Unknown]

NARRATIVE: CASE EVENT DATE: 20240930
